FAERS Safety Report 8391278-0 (Version None)
Quarter: 2012Q2

REPORT INFORMATION
  Report Type: 
  Country: None (occurrence: None)
  Receive Date: 20120529
  Receipt Date: 20120113
  Transmission Date: 20120825
  Serious: No
  Sender: FDA-Public Use
  Company Number: US-ABBOTT-12P-163-0893402-00

PATIENT
  Sex: Male
  Weight: 104.42 kg

DRUGS (6)
  1. ZEMPLAR [Suspect]
     Indication: HYPERPARATHYROIDISM
     Dates: start: 20120101, end: 20120113
  2. ALLOPURINOL [Concomitant]
     Indication: BLOOD URIC ACID INCREASED
  3. CLONIDINE [Concomitant]
     Indication: HYPERTENSION
  4. METOPROLOL TARTRATE [Concomitant]
     Indication: HYPERTENSION
  5. AMLODIPINE BESYLATE [Concomitant]
     Indication: HYPERTENSION
  6. ZEMPLAR [Suspect]
     Dates: start: 20120101

REACTIONS (7)
  - DRY MOUTH [None]
  - DECREASED APPETITE [None]
  - FOOT FRACTURE [None]
  - GAIT DISTURBANCE [None]
  - FEELING COLD [None]
  - PAIN IN EXTREMITY [None]
  - ERYTHEMA [None]
